FAERS Safety Report 5099886-X (Version None)
Quarter: 2006Q3

REPORT INFORMATION
  Report Type: 
  Country: None (occurrence: None)
  Receive Date: 20060908
  Receipt Date: 20060823
  Transmission Date: 20061208
  Serious: Yes (Hospitalization)
  Sender: FDA-Public Use
  Company Number: US-AVENTIS-200618803GDDC

PATIENT
  Age: 50 Year
  Sex: Female
  Weight: 116 kg

DRUGS (11)
  1. TAXOTERE [Suspect]
     Indication: NON-SMALL CELL LUNG CANCER
     Route: 042
     Dates: start: 20060816, end: 20060816
  2. CISPLATIN [Suspect]
     Indication: NON-SMALL CELL LUNG CANCER
     Route: 042
     Dates: start: 20060816, end: 20060816
  3. GLEEVEC [Suspect]
     Indication: NON-SMALL CELL LUNG CANCER
     Dosage: DOSE: 400 MG QD DAY -5 TO DAY +2 EACH CYCLE OF CHEMO
     Route: 048
  4. COMPAZINE [Concomitant]
  5. PROTONIX [Concomitant]
  6. LORAZEPAM [Concomitant]
  7. HYDROCHLOROTHIAZIDE [Concomitant]
  8. DEXAMETHASONE TAB [Concomitant]
     Dosage: DOSE: 4 MG WITH CHEMOTHERAPY
  9. SSRI [Concomitant]
  10. CLONIDINE [Concomitant]
     Dosage: DOSE: 0.1 MG IN THE AM AND 0.2 MG AT BEDTIME
  11. IMATINIB [Concomitant]
     Dosage: DOSE: 4 TABLETS

REACTIONS (7)
  - DEHYDRATION [None]
  - DIARRHOEA [None]
  - FEBRILE NEUTROPENIA [None]
  - HYPOKALAEMIA [None]
  - LABORATORY TEST ABNORMAL [None]
  - NAUSEA [None]
  - VOMITING [None]
